FAERS Safety Report 8934863 (Version 3)
Quarter: 2013Q1

REPORT INFORMATION
  Report Type: Spontaneous
  Country: US (occurrence: US)
  Receive Date: 20121129
  Receipt Date: 20130108
  Transmission Date: 20140127
  Serious: Yes (Death, Other)
  Sender: FDA-Public Use
  Company Number: US-PFIZER INC-2012299188

PATIENT
  Age: 60 Year
  Sex: Male

DRUGS (8)
  1. LYRICA [Suspect]
     Indication: COMPLEX REGIONAL PAIN SYNDROME
     Dosage: 150 MG, 2X/DAY
     Route: 048
     Dates: start: 20100629
  2. LYRICA [Suspect]
     Indication: NEURALGIA
  3. NEURONTIN [Suspect]
     Dosage: UNK
  4. DEPAKOTE ER [Concomitant]
     Dosage: 500 MG, UNK
  5. LISINOPRIL HCT [Concomitant]
     Dosage: 20/12.5MG
  6. TRICOR [Concomitant]
     Dosage: 145 MG, UNK
  7. VICODIN ES [Concomitant]
     Dosage: 7.5/750MG
  8. CYMBALTA [Concomitant]
     Dosage: 100 MG, UNK

REACTIONS (1)
  - Death [Fatal]
